FAERS Safety Report 7435557-X (Version None)
Quarter: 2011Q2

REPORT INFORMATION
  Report Type: 
  Country: None (occurrence: None)
  Receive Date: 20110425
  Receipt Date: 20110422
  Transmission Date: 20111010
  Serious: No
  Sender: FDA-Public Use
  Company Number: US-PFIZER INC-2011088136

PATIENT
  Sex: Female
  Weight: 58.05 kg

DRUGS (4)
  1. PRISTIQ [Suspect]
     Indication: PAIN MANAGEMENT
  2. PREVACID [Concomitant]
     Indication: GASTRITIS
     Dosage: 30 MG, UNK
     Route: 048
  3. XANAX [Suspect]
     Indication: SLEEP DISORDER
     Dosage: UNK
     Route: 048
     Dates: start: 20110101
  4. PRISTIQ [Suspect]
     Indication: PAIN IN EXTREMITY
     Dosage: 50 MG, DAILY
     Route: 048
     Dates: start: 20110101

REACTIONS (5)
  - ARTHRALGIA [None]
  - MYALGIA [None]
  - FEELING HOT [None]
  - WRONG TECHNIQUE IN DRUG USAGE PROCESS [None]
  - PAIN IN EXTREMITY [None]
